FAERS Safety Report 10069765 (Version 3)
Quarter: 2016Q1

REPORT INFORMATION
  Report Type: Spontaneous
  Country: US (occurrence: US)
  Receive Date: 20140410
  Receipt Date: 20160316
  Transmission Date: 20160525
  Serious: Yes (Hospitalization)
  Sender: FDA-Public Use
  Company Number: US-PFIZER INC-2014096953

PATIENT
  Age: 68 Year
  Sex: Male
  Weight: 62 kg

DRUGS (2)
  1. REVATIO [Suspect]
     Active Substance: SILDENAFIL CITRATE
     Indication: BLOOD PRESSURE ABNORMAL
  2. REVATIO [Suspect]
     Active Substance: SILDENAFIL CITRATE
     Indication: BLOOD PRESSURE ABNORMAL
     Dosage: 40 MG, 3X/DAY
     Route: 048
     Dates: start: 201308

REACTIONS (4)
  - Lethargy [Unknown]
  - Internal haemorrhage [Unknown]
  - Wound [Unknown]
  - Malaise [Unknown]

NARRATIVE: CASE EVENT DATE: 20140403
